FAERS Safety Report 16258230 (Version 7)
Quarter: 2020Q1

REPORT INFORMATION
  Report Type: Spontaneous
  Country: US (occurrence: US)
  Receive Date: 20190430
  Receipt Date: 20200210
  Transmission Date: 20200409
  Serious: Yes (Hospitalization)
  Sender: FDA-Public Use
  Company Number: US-VIFOR (INTERNATIONAL) INC.-VIT-2019-03931

PATIENT
  Age: 42 Year
  Sex: Male

DRUGS (17)
  1. AMLODIPINE BESYLATE. [Concomitant]
     Active Substance: AMLODIPINE BESYLATE
  2. COLCHICINE. [Concomitant]
     Active Substance: COLCHICINE
  3. DOXYCYCLINE HYCLATE. [Concomitant]
     Active Substance: DOXYCYCLINE HYCLATE
  4. IRON [Concomitant]
     Active Substance: IRON
  5. LANTUS [Concomitant]
     Active Substance: INSULIN GLARGINE
  6. VELTASSA [Suspect]
     Active Substance: PATIROMER
     Indication: HYPERKALAEMIA
     Route: 048
     Dates: start: 20181112
  7. WARFARIN SODIUM. [Concomitant]
     Active Substance: WARFARIN SODIUM
  8. ATORVASTATIN CALCIUM. [Concomitant]
     Active Substance: ATORVASTATIN CALCIUM
  9. DAILY-VITE [Concomitant]
  10. FOSRENOL [Concomitant]
     Active Substance: LANTHANUM CARBONATE
  11. VELTASSA [Suspect]
     Active Substance: PATIROMER
     Route: 048
     Dates: start: 20181127
  12. ULORIC [Concomitant]
     Active Substance: FEBUXOSTAT
  13. CLINDAMYCIN PHOSPHATE. [Concomitant]
     Active Substance: CLINDAMYCIN PHOSPHATE
  14. VITAMIN C [Concomitant]
     Active Substance: ASCORBIC ACID
  15. HUMALOG [Concomitant]
     Active Substance: INSULIN LISPRO
  16. LIDOCAINE-PRILOCAINE [Concomitant]
     Active Substance: LIDOCAINE\PRILOCAINE
  17. ESCITALOPRAM OXALATE. [Concomitant]
     Active Substance: ESCITALOPRAM OXALATE

REACTIONS (4)
  - Hidradenitis [Not Recovered/Not Resolved]
  - Chronic disease [Unknown]
  - Skin graft [Not Recovered/Not Resolved]
  - Wound [Not Recovered/Not Resolved]

NARRATIVE: CASE EVENT DATE: 20190417
